FAERS Safety Report 5328798-9 (Version None)
Quarter: 2007Q2

REPORT INFORMATION
  Report Type: 
  Country: None (occurrence: None)
  Receive Date: 20070518
  Receipt Date: 20070505
  Transmission Date: 20071010
  Serious: Yes (Other)
  Sender: FDA-Public Use
  Company Number: CA-ELI_LILLY_AND_COMPANY-CA200705002770

PATIENT
  Age: 89 Year
  Sex: Female
  Weight: 55.328 kg

DRUGS (8)
  1. FORTEO [Suspect]
     Indication: OSTEOPOROSIS
     Dosage: 20 UG, DAILY (1/D)
     Route: 058
     Dates: start: 20070413
  2. ZESTRIL [Concomitant]
  3. CATAPRES /UNK/ [Concomitant]
  4. TRIAZIDE [Concomitant]
  5. PAXIL [Concomitant]
  6. CLONAZEPAM [Concomitant]
  7. VITAMIN D [Concomitant]
  8. CALCIUM CHLORIDE [Concomitant]

REACTIONS (3)
  - BLOOD PRESSURE SYSTOLIC INCREASED [None]
  - HEART RATE INCREASED [None]
  - HOT FLUSH [None]
